FAERS Safety Report 6877594-X (Version None)
Quarter: 2010Q3

REPORT INFORMATION
  Report Type: 
  Country: None (occurrence: None)
  Receive Date: 20100727
  Receipt Date: 20100330
  Transmission Date: 20110219
  Serious: No
  Sender: FDA-Public Use
  Company Number: US-ABBOTT-10P-163-0631814-00

PATIENT
  Sex: Female
  Weight: 51.756 kg

DRUGS (1)
  1. SYNTHROID [Suspect]
     Indication: HYPOTHYROIDISM
     Dates: start: 20080501

REACTIONS (4)
  - DRUG LEVEL FLUCTUATING [None]
  - FATIGUE [None]
  - MALABSORPTION [None]
  - MENSTRUATION IRREGULAR [None]
